FAERS Safety Report 15893869 (Version 25)
Quarter: 2022Q4

REPORT INFORMATION
  Report Type: Spontaneous
  Country: GB (occurrence: GB)
  Receive Date: 20190131
  Receipt Date: 20221208
  Transmission Date: 20230113
  Serious: Yes (Hospitalization, Other)
  Sender: FDA-Public Use
  Company Number: GB-MYLANLABS-2018M1087643

PATIENT
  Age: 27 Year
  Sex: Male

DRUGS (69)
  1. OLANZAPINE [Suspect]
     Active Substance: OLANZAPINE
     Indication: Schizophrenia
     Dosage: UNK
     Route: 065
     Dates: start: 201801
  2. OLANZAPINE [Suspect]
     Active Substance: OLANZAPINE
     Dosage: UNK
     Route: 065
     Dates: start: 201811
  3. OLANZAPINE [Suspect]
     Active Substance: OLANZAPINE
     Dosage: UNK
     Route: 065
     Dates: start: 20181130
  4. CLOZARIL [Suspect]
     Active Substance: CLOZAPINE
     Indication: Schizophrenia
     Dosage: 1 DOSAGE FORM, DAILY
     Route: 065
  5. CLOZARIL [Suspect]
     Active Substance: CLOZAPINE
     Dosage: UNK
     Route: 065
     Dates: start: 201811
  6. CLOZARIL [Suspect]
     Active Substance: CLOZAPINE
     Dosage: 1 DOSAGE FORM, QD
     Route: 048
     Dates: start: 20181115, end: 20181231
  7. CLOZARIL [Suspect]
     Active Substance: CLOZAPINE
     Dosage: UNK (CUMULATIVE DOSE; 33 DOSAGE FORM)
     Route: 048
     Dates: start: 20181130
  8. CLOZARIL [Suspect]
     Active Substance: CLOZAPINE
     Dosage: 1 DOSAGE FORM
     Route: 065
     Dates: start: 201811
  9. CLOZARIL [Suspect]
     Active Substance: CLOZAPINE
     Dosage: 1 DOSAGE FORM, QD
     Route: 048
     Dates: start: 20181212, end: 20181231
  10. CLOZARIL [Suspect]
     Active Substance: CLOZAPINE
     Dosage: 1 DOSAGE FORM, DAILY
     Route: 048
     Dates: start: 20181231
  11. CLOZARIL [Suspect]
     Active Substance: CLOZAPINE
     Dosage: 1 DOSAGE FORM, QD
     Route: 048
     Dates: start: 20191120, end: 20191202
  12. CLOZARIL [Suspect]
     Active Substance: CLOZAPINE
     Dosage: 1 DOSAGE FORM
     Route: 065
     Dates: start: 20191202
  13. CLOZARIL [Suspect]
     Active Substance: CLOZAPINE
     Dosage: UNK
     Route: 065
     Dates: start: 20211231
  14. CLOZARIL [Suspect]
     Active Substance: CLOZAPINE
     Dosage: 1 DOSAGE FORM
     Route: 048
     Dates: start: 20211231
  15. CLONAZEPAM [Concomitant]
     Active Substance: CLONAZEPAM
     Indication: Product used for unknown indication
     Dosage: 2.5 MILLILITER, EVER 4 DAYS
     Route: 048
  16. CLONAZEPAM [Concomitant]
     Active Substance: CLONAZEPAM
     Dosage: 2.5 MILLILITER, ONCE A DAY
     Route: 048
  17. CLONAZEPAM [Concomitant]
     Active Substance: CLONAZEPAM
     Dosage: 10 MILLILITER, ONCE A DAY (2.5 MILLILITER, QID)
     Route: 048
  18. CLONAZEPAM [Concomitant]
     Active Substance: CLONAZEPAM
     Dosage: 40 MILLILITER, ONCE A DAY (10 MILLILITER, QID)
     Route: 065
  19. CLONAZEPAM [Concomitant]
     Active Substance: CLONAZEPAM
     Dosage: 10 MILLIGRAM, ONCE A DAY
     Route: 065
  20. CLONAZEPAM [Concomitant]
     Active Substance: CLONAZEPAM
     Dosage: 12 MILLILITER,2.5 ML, QID
     Route: 048
  21. CLONAZEPAM [Concomitant]
     Active Substance: CLONAZEPAM
     Dosage: 40 MILLILITER, QD
     Route: 065
  22. CLONAZEPAM [Concomitant]
     Active Substance: CLONAZEPAM
     Dosage: 2.5 ML, QD
     Route: 048
     Dates: start: 201811
  23. CLONAZEPAM [Concomitant]
     Active Substance: CLONAZEPAM
     Dosage: 15 MILLILITER, ONCE A DAY
     Route: 005
  24. LI LIQUID [Concomitant]
     Indication: Product used for unknown indication
     Dosage: 15 MILLILITER, ONCE A DAY (15 MILLILITER, PM, 15ML (600MG) NOCTE
     Route: 005
  25. LI LIQUID [Concomitant]
     Dosage: UNK, ONCE A DAY 1 OT, QD (UNK, PM)
     Route: 005
  26. LI LIQUID [Concomitant]
     Dosage: 1 DOSAGE FORM, ONCE A DAY, (PM)
     Route: 005
  27. LI LIQUID [Concomitant]
     Dosage: 1 DOSAGE FORM, DAILY
     Route: 005
  28. LI LIQUID [Concomitant]
     Dosage: UNK
  29. LI LIQUID [Concomitant]
     Dosage: UNK
  30. LI LIQUID [Concomitant]
     Dosage: UNK
  31. LI LIQUID [Concomitant]
     Dosage: UNK
  32. LI LIQUID [Concomitant]
     Dosage: UNK
  33. LI LIQUID [Concomitant]
     Dosage: UNK
  34. LI LIQUID [Concomitant]
     Dosage: UNK
  35. LI LIQUID [Concomitant]
     Dosage: UNK
  36. LI LIQUID [Concomitant]
     Dosage: UNK
  37. LI LIQUID [Concomitant]
     Dosage: UNK
  38. LITHIUM CITRATE [Concomitant]
     Active Substance: LITHIUM CITRATE
     Indication: Product used for unknown indication
     Dosage: 15 MILLILITER, ONCE A DAY (15ML (600 MG) NOCTE, QD15 MILLILITER, QD)
     Route: 005
  39. LITHIUM CITRATE [Concomitant]
     Active Substance: LITHIUM CITRATE
     Dosage: 1 DOSAGE FORM, ONCE A DAY (1 DF, QD (PM)
     Route: 005
  40. LITHIUM CITRATE [Concomitant]
     Active Substance: LITHIUM CITRATE
     Dosage: UNK
     Route: 005
  41. LITHIUM CITRATE [Concomitant]
     Active Substance: LITHIUM CITRATE
     Dosage: 1 DOSAGE FORM, DAILY
     Route: 005
  42. LITHIUM CITRATE [Concomitant]
     Active Substance: LITHIUM CITRATE
     Dosage: 1 DOSAGE FORM, DAILY(1 DOSAGE FORM, DAILY (PM)
     Route: 005
  43. LITHIUM CITRATE [Concomitant]
     Active Substance: LITHIUM CITRATE
     Dosage: 1 DOSAGE FORM, DAILY(1 DOSAGE FORM, DAILY (1 DF, QD (PM))
     Route: 005
  44. LITHIUM CITRATE [Concomitant]
     Active Substance: LITHIUM CITRATE
     Dosage: 15 MILLILITER, DAILY(15 ML, DAILY (15 ML (600MG), DAILY))
     Route: 005
  45. LITHIUM CITRATE [Concomitant]
     Active Substance: LITHIUM CITRATE
     Dosage: 15 MILLILITER, DAILY(15 ML, DAILY (600MG))
     Route: 005
  46. LITHIUM CITRATE [Concomitant]
     Active Substance: LITHIUM CITRATE
     Dosage: 15 MILLILITER, DAILY(15 ML, DAILY (600MG))
     Route: 005
  47. LITHIUM CITRATE [Concomitant]
     Active Substance: LITHIUM CITRATE
     Dosage: UNK
     Route: 065
  48. LITHIUM CITRATE [Concomitant]
     Active Substance: LITHIUM CITRATE
     Dosage: 30 MILLILITER, ONCE A DAY,(15ML (600 MG) NOCTE, QD15 MILLILITER, QD )
     Route: 005
  49. LITHIUM CITRATE [Concomitant]
     Active Substance: LITHIUM CITRATE
     Dosage: 30 MILLILITER, ONCE A DAY,(15ML (600 MG) NOCTE, QD15 MILLILITER, QD )
     Route: 005
  50. QUETIAPINE [Concomitant]
     Active Substance: QUETIAPINE
     Indication: Product used for unknown indication
     Dosage: 10 MILLILITER, ONCE A DAY(10 MILLILITER, AM,QD)
     Route: 065
  51. QUETIAPINE [Concomitant]
     Active Substance: QUETIAPINE
     Dosage: 20 MILLIMOLE, ONCE A DAY(20 MMOL, QD (20 MILLIMOLE, PM, 1DF))
     Route: 065
  52. QUETIAPINE [Concomitant]
     Active Substance: QUETIAPINE
     Dosage: 20 MILLILITER, ONCE A DAY (20 MILLILITER, QD)
     Route: 065
  53. QUETIAPINE [Concomitant]
     Active Substance: QUETIAPINE
     Dosage: 25 MILLIMOLE, ONCE A DAY (25 MILLIMOLE, QD (PM))
     Route: 065
  54. QUETIAPINE [Concomitant]
     Active Substance: QUETIAPINE
     Dosage: UNK
     Route: 065
  55. QUETIAPINE [Concomitant]
     Active Substance: QUETIAPINE
     Dosage: 20 MILLIMOLE, ONCE A DAY(20 MMOL, QD (20 MILLIMOLE, PM, 1DF))
     Route: 065
  56. QUETIAPINE [Concomitant]
     Active Substance: QUETIAPINE
     Dosage: 20 MMOL, QD, PM
     Route: 005
  57. VALPROATE SODIUM [Concomitant]
     Active Substance: VALPROATE SODIUM
     Indication: Product used for unknown indication
     Dosage: 18.75 MILLILITER, ONCE A DAY (18.75 MILLILITER, QD)
     Route: 065
  58. VALPROATE SODIUM [Concomitant]
     Active Substance: VALPROATE SODIUM
     Dosage: 25 MILLIMOLE, ONCE A DAY(25 MMOL, QD (25 MILLIMOLE, PM))
     Route: 065
  59. VALPROATE SODIUM [Concomitant]
     Active Substance: VALPROATE SODIUM
     Dosage: UNK, ONCE A DAY (UNK, AM)
     Route: 065
  60. VALPROATE SODIUM [Concomitant]
     Active Substance: VALPROATE SODIUM
     Dosage: UNK, ONCE A DAY (UNK, PM)
     Route: 065
  61. VALPROATE SODIUM [Concomitant]
     Active Substance: VALPROATE SODIUM
     Dosage: 18.75 MILLIMOLE, ONCE A DAY
     Route: 065
  62. VALPROATE SODIUM [Concomitant]
     Active Substance: VALPROATE SODIUM
     Dosage: 18.75 MILLIMOLE, DAILY
     Route: 065
  63. VALPROATE SODIUM [Concomitant]
     Active Substance: VALPROATE SODIUM
     Dosage: 25 MILLIGRAM, DAILY
     Route: 065
  64. VALPROATE SODIUM [Concomitant]
     Active Substance: VALPROATE SODIUM
     Dosage: UNK,(UNK AM)
     Route: 065
  65. VALPROATE SODIUM [Concomitant]
     Active Substance: VALPROATE SODIUM
     Dosage: UNK,(UNK PM)
     Route: 065
  66. VALPROATE SODIUM [Concomitant]
     Active Substance: VALPROATE SODIUM
     Dosage: 18.75 ML, QD
     Route: 065
  67. VALPROIC ACID [Concomitant]
     Active Substance: VALPROIC ACID
     Indication: Product used for unknown indication
     Dosage: 18.75 MMOL, QD (AM)
     Route: 065
  68. VALPROIC ACID [Concomitant]
     Active Substance: VALPROIC ACID
     Dosage: 25 MMOL, QD
     Route: 065
  69. VALPROIC ACID [Concomitant]
     Active Substance: VALPROIC ACID
     Dosage: 25 MMOL, QD
     Route: 065

REACTIONS (9)
  - Malaise [Unknown]
  - White blood cell count decreased [Recovered/Resolved]
  - Neutropenia [Recovered/Resolved]
  - Neutrophil count increased [Recovered/Resolved]
  - Eosinophilia [Recovered/Resolved]
  - Abnormal behaviour [Unknown]
  - Aggression [Unknown]
  - Drug ineffective [Unknown]
  - Off label use [Unknown]

NARRATIVE: CASE EVENT DATE: 20181101
